FAERS Safety Report 7044533-0 (Version None)
Quarter: 2010Q4

REPORT INFORMATION
  Report Type: 
  Country: None (occurrence: None)
  Receive Date: 20101014
  Receipt Date: 20100929
  Transmission Date: 20110411
  Serious: Yes (Other)
  Sender: FDA-Public Use
  Company Number: PHEH2009US04183

PATIENT
  Sex: Female

DRUGS (6)
  1. AREDIA [Suspect]
     Indication: OSTEOPOROSIS
     Dosage: MONTHLY
     Dates: start: 20000417, end: 20060915
  2. AREDIA [Suspect]
     Indication: OSTEITIS DEFORMANS
     Dosage: EVERY 3 MONLTHS
  3. AREDIA [Suspect]
     Indication: METASTASES TO BONE
  4. FOSAMAX [Suspect]
     Indication: OSTEOPOROSIS
  5. FOSAMAX [Suspect]
     Indication: OSTEITIS DEFORMANS
  6. ZOMETA [Suspect]

REACTIONS (22)
  - ABDOMINAL PAIN [None]
  - ADRENAL ADENOMA [None]
  - ADRENAL MASS [None]
  - ANHEDONIA [None]
  - ANXIETY [None]
  - BACK PAIN [None]
  - BONE SWELLING [None]
  - CELLULITIS [None]
  - CHOLELITHIASIS [None]
  - CONDITION AGGRAVATED [None]
  - EMOTIONAL DISTRESS [None]
  - INJURY [None]
  - JAW DISORDER [None]
  - KYPHOSCOLIOSIS [None]
  - NECK PAIN [None]
  - NEPHROLITHIASIS [None]
  - OEDEMA PERIPHERAL [None]
  - OSTEOARTHRITIS [None]
  - OSTEONECROSIS OF JAW [None]
  - PAIN [None]
  - PERIPHERAL VASCULAR DISORDER [None]
  - TOOTH LOSS [None]
